FAERS Safety Report 11138590 (Version 1)
Quarter: 2015Q2

REPORT INFORMATION
  Report Type: Spontaneous
  Country: US (occurrence: US)
  Receive Date: 20150527
  Receipt Date: 20150527
  Transmission Date: 20150821
  Serious: Yes (Other)
  Sender: FDA-Public Use
  Company Number: US-PFIZER INC-2015172500

PATIENT
  Age: 70 Year
  Sex: Female
  Weight: 65.31 kg

DRUGS (2)
  1. XALATAN [Suspect]
     Active Substance: LATANOPROST
     Indication: GLAUCOMA
     Dosage: UNK, 1X/DAY(IN BOTH EYES)
  2. COSOPT [Suspect]
     Active Substance: DORZOLAMIDE HYDROCHLORIDE\TIMOLOL MALEATE
     Indication: GLAUCOMA
     Dosage: UNK, 2X/DAY

REACTIONS (4)
  - Product quality issue [Unknown]
  - Incorrect dose administered [Unknown]
  - Visual acuity reduced [Unknown]
  - Glaucoma [Unknown]
